FAERS Safety Report 10161638 (Version 2)
Quarter: 2014Q2

REPORT INFORMATION
  Report Type: Report from Study
  Country: TW (occurrence: TW)
  Receive Date: 20140509
  Receipt Date: 20140509
  Transmission Date: 20141212
  Serious: Yes (Life-Threatening, Hospitalization)
  Sender: FDA-Public Use
  Company Number: TW-BRISTOL-MYERS SQUIBB COMPANY-19890409

PATIENT
  Age: 83 Year
  Sex: Male

DRUGS (13)
  1. ORENCIA [Suspect]
     Indication: RHEUMATOID ARTHRITIS
     Dosage: 1ST DOSE:22JUL13, 2ND:05AUG13, 3RD:19AUG13, 4TH:16SEP13, 5TH:14OCT13, 6TH:17NOV13
     Route: 041
     Dates: start: 20130722, end: 20131107
  2. ATORVASTATIN [Concomitant]
  3. CLOPIDOGREL BISULFATE [Concomitant]
  4. RAMIPRIL [Concomitant]
  5. SPIRONOLACTONE [Concomitant]
  6. BISOPROLOL [Concomitant]
  7. FAMOTIDINE [Concomitant]
  8. METHYLPREDNISOLONE [Concomitant]
  9. ULTRACET [Concomitant]
  10. INH [Concomitant]
  11. METOCLOPRAMIDE [Concomitant]
  12. SULFASALAZINE [Concomitant]
  13. HYDROXYCHLOROQUINE [Concomitant]

REACTIONS (7)
  - Acute pulmonary oedema [Unknown]
  - Acute coronary syndrome [Unknown]
  - Fall [Recovering/Resolving]
  - Rib fracture [Recovering/Resolving]
  - Haemothorax [Recovering/Resolving]
  - Urinary tract infection [Recovering/Resolving]
  - Pneumonia [Recovering/Resolving]
